FAERS Safety Report 6232124-0 (Version None)
Quarter: 2009Q2

REPORT INFORMATION
  Report Type: 
  Country: None (occurrence: None)
  Receive Date: 20090617
  Receipt Date: 20090603
  Transmission Date: 20091009
  Serious: Yes (Hospitalization, Disabling, Other)
  Sender: FDA-Public Use
  Company Number: GB-RANBAXY-2007RR-08499

PATIENT
  Age: 38 Year
  Sex: Female
  Weight: 60 kg

DRUGS (16)
  1. IBUPROFEN [Suspect]
     Route: 065
  2. CHAMPIX [Suspect]
     Indication: SMOKING CESSATION THERAPY
     Dosage: .5 MG, BID
     Route: 048
     Dates: start: 20070420
  3. ASPIRIN [Concomitant]
     Dosage: 75 MG, QD
     Route: 065
  4. ACTRAPID [Concomitant]
  5. IRBESARTAN [Concomitant]
     Dosage: 150 MG, QD
     Route: 065
  6. BUMETANIDE [Concomitant]
     Dosage: 1 MG, QD
  7. DOTHIEPIN HYDROCHLORIDE [Concomitant]
     Dosage: 25 MG, BID
  8. FLUCATISONE [Concomitant]
     Dosage: 2 DF, BID
     Route: 055
  9. FRUSEMIDE [Concomitant]
     Dosage: 40 MG, QD
  10. GABAPENTIN [Concomitant]
     Dosage: 300 MG, TID
  11. KETOCONAZOLE [Concomitant]
     Dosage: 2 %, UNK
  12. LEVOTHYROXINE SODIUM [Concomitant]
  13. RAMIPRIL [Concomitant]
     Dosage: 10 MG, QD
  14. SALMETEROL [Concomitant]
     Dosage: 2 DF, BID
     Route: 055
  15. TRAMADOL HYDROCHLORIDE [Concomitant]
     Dosage: 100 MG, BID
  16. SERETIDE [Concomitant]
     Dosage: 2 DF, BID

REACTIONS (2)
  - INSOMNIA [None]
  - LIVER FUNCTION TEST ABNORMAL [None]
